FAERS Safety Report 10826350 (Version 1)
Quarter: 2015Q1

REPORT INFORMATION
  Report Type: Spontaneous
  Country: US (occurrence: US)
  Receive Date: 20150219
  Receipt Date: 20150219
  Transmission Date: 20150721
  Serious: Yes (Other)
  Sender: FDA-Public Use
  Company Number: US-ABBVIE-14K-163-1326280-00

PATIENT
  Age: 53 Year
  Sex: Female

DRUGS (1)
  1. HUMIRA [Suspect]
     Active Substance: ADALIMUMAB
     Indication: PRODUCT USED FOR UNKNOWN INDICATION
     Route: 065
     Dates: start: 20141213

REACTIONS (6)
  - Injection site warmth [Unknown]
  - Dyspnoea [Unknown]
  - Injection site erythema [Unknown]
  - Pharyngeal oedema [Unknown]
  - Anaphylactic reaction [Unknown]
  - Throat irritation [Unknown]

NARRATIVE: CASE EVENT DATE: 201412
